FAERS Safety Report 8116990-X (Version None)
Quarter: 2012Q1

REPORT INFORMATION
  Report Type: 
  Country: None (occurrence: None)
  Receive Date: 20120206
  Receipt Date: 20120125
  Transmission Date: 20120608
  Serious: Yes (Other)
  Sender: FDA-Public Use
  Company Number: US-ROCHE-1034479

PATIENT
  Sex: Female
  Weight: 88.53 kg

DRUGS (10)
  1. KLONOPIN [Suspect]
     Indication: ANXIETY
  2. ZANTAC [Concomitant]
  3. OXYBUTYNIN [Concomitant]
  4. MOBIC [Concomitant]
  5. OXYCODONE HCL [Concomitant]
  6. SOMA [Concomitant]
  7. PROVENTIL-HFA [Concomitant]
     Indication: CHRONIC OBSTRUCTIVE PULMONARY DISEASE
     Dosage: INHALATION AEROSOL
  8. NEXIUM [Concomitant]
  9. METOCLOPRAMIDE [Concomitant]
  10. CENTRUM [Concomitant]

REACTIONS (1)
  - SUPRAVENTRICULAR TACHYCARDIA [None]
